FAERS Safety Report 20132018 (Version 2)
Quarter: 2021Q4

REPORT INFORMATION
  Report Type: Report from Study
  Country: GB (occurrence: GB)
  Receive Date: 20211130
  Receipt Date: 20211210
  Transmission Date: 20220303
  Serious: Yes (Hospitalization, Disabling)
  Sender: FDA-Public Use
  Company Number: GB-PFIZER INC-202101594344

PATIENT
  Age: 23 Year
  Sex: Female

DRUGS (7)
  1. TAFAMIDIS [Suspect]
     Active Substance: TAFAMIDIS
     Dosage: 61 MG, DAILY
  2. PHENYTOIN [Concomitant]
     Active Substance: PHENYTOIN
     Dosage: 200+175MG, DAILY
  3. CYCLIZINE [Concomitant]
     Active Substance: CYCLIZINE
     Dosage: 50 MG, DAILY
  4. CLOBAZAM [Concomitant]
     Active Substance: CLOBAZAM
     Dosage: 10 MG, 2X/DAY
  5. GLICLAZIDE [Concomitant]
     Active Substance: GLICLAZIDE
     Dosage: 100 MG, 2X/DAY
  6. KEPPRA [Concomitant]
     Active Substance: LEVETIRACETAM
     Dosage: 1500 + 1750MG
  7. PATISIRAN [Concomitant]
     Active Substance: PATISIRAN
     Dosage: INFUSIONS, EVERY 3 WEEKS

REACTIONS (1)
  - Seizure [Recovered/Resolved with Sequelae]

NARRATIVE: CASE EVENT DATE: 20211114
